FAERS Safety Report 13897097 (Version 1)
Quarter: 2017Q3

REPORT INFORMATION
  Report Type: Spontaneous
  Country: DE (occurrence: DE)
  Receive Date: 20170823
  Receipt Date: 20170823
  Transmission Date: 20171127
  Serious: Yes (Other)
  Sender: FDA-Public Use
  Company Number: DE-ASTELLAS-2017US033417

PATIENT
  Sex: Male

DRUGS (1)
  1. VESIKUR [Suspect]
     Active Substance: SOLIFENACIN SUCCINATE
     Indication: PRODUCT USED FOR UNKNOWN INDICATION
     Route: 065
     Dates: start: 20170711

REACTIONS (3)
  - Arrhythmia [Unknown]
  - Loss of consciousness [Unknown]
  - Confusional state [Unknown]

NARRATIVE: CASE EVENT DATE: 20170816
